FAERS Safety Report 4640265-4 (Version None)
Quarter: 2005Q2

REPORT INFORMATION
  Report Type: 
  Country: None (occurrence: None)
  Receive Date: 20050420
  Receipt Date: 20050322
  Transmission Date: 20051028
  Serious: No
  Sender: FDA-Public Use
  Company Number: BE-GLAXOSMITHKLINE-B0376250A

PATIENT
  Age: 25 Year
  Sex: Male
  Weight: 70 kg

DRUGS (2)
  1. ZINNAT [Suspect]
     Indication: SINUSITIS
     Dosage: 500MG THREE TIMES PER DAY
     Route: 048
     Dates: start: 20050301, end: 20050301
  2. DAFALGAN [Concomitant]
     Dosage: 1000MG FOUR TIMES PER DAY
     Route: 048

REACTIONS (7)
  - CHEST PAIN [None]
  - HEADACHE [None]
  - HYPERVENTILATION [None]
  - NAUSEA [None]
  - PARAESTHESIA [None]
  - PARAESTHESIA ORAL [None]
  - SENSE OF OPPRESSION [None]
